FAERS Safety Report 6473767-9 (Version None)
Quarter: 2009Q4

REPORT INFORMATION
  Report Type: 
  Country: None (occurrence: None)
  Receive Date: 20091204
  Receipt Date: 20091124
  Transmission Date: 20100525
  Serious: Yes (Hospitalization)
  Sender: FDA-Public Use
  Company Number: JP-PFIZER INC-2009303320

PATIENT
  Age: 35 Year
  Sex: Male
  Weight: 74 kg

DRUGS (5)
  1. SUNITINIB MALATE [Suspect]
     Indication: METASTATIC RENAL CELL CARCINOMA
     Dosage: 50 MG, 1X/DAY
     Route: 048
     Dates: start: 20090729
  2. CARBENIN [Suspect]
     Route: 042
     Dates: start: 20090809, end: 20090810
  3. RINDERON [Concomitant]
     Route: 048
     Dates: start: 20090806, end: 20090812
  4. RAMOSETRON HYDROCHLORIDE [Concomitant]
     Route: 048
     Dates: start: 20090806, end: 20090812
  5. TAGAMET [Concomitant]
     Route: 048
     Dates: start: 20090806, end: 20090812

REACTIONS (3)
  - DECREASED APPETITE [None]
  - LIVER DISORDER [None]
  - PYREXIA [None]
